FAERS Safety Report 19596705 (Version 1)
Quarter: 2021Q3

REPORT INFORMATION
  Report Type: Spontaneous
  Country: CR (occurrence: CR)
  Receive Date: 20210722
  Receipt Date: 20210722
  Transmission Date: 20211014
  Serious: Yes (Other)
  Sender: FDA-Public Use
  Company Number: CR-PFIZER INC-2020494121

PATIENT
  Age: 91 Year
  Sex: Female

DRUGS (1)
  1. NORVASC [Suspect]
     Active Substance: AMLODIPINE BESYLATE
     Dosage: 1 DF (OCCASIONALLY)
     Route: 048
     Dates: start: 2018

REACTIONS (3)
  - Intentional product misuse [Unknown]
  - Hypotension [Unknown]
  - Cerebral ventricle collapse [Unknown]
